FAERS Safety Report 5690905-6 (Version None)
Quarter: 2008Q2

REPORT INFORMATION
  Report Type: 
  Country: None (occurrence: None)
  Receive Date: 20080401
  Receipt Date: 20080327
  Transmission Date: 20081010
  Serious: Yes (Hospitalization)
  Sender: FDA-Public Use
  Company Number: US-ASTRAZENECA-2008UW06105

PATIENT
  Age: 416 Month
  Sex: Female
  Weight: 104.3 kg

DRUGS (15)
  1. SEROQUEL [Suspect]
     Indication: BIPOLAR DISORDER
     Route: 048
     Dates: start: 20070501
  2. SEROQUEL [Suspect]
     Indication: MANIA
     Route: 048
     Dates: start: 20070501
  3. SPIRIVA [Concomitant]
  4. ADVAIR HFA [Concomitant]
  5. PROVENTIL [Concomitant]
  6. CARTIA XT [Concomitant]
  7. SINGULAIR [Concomitant]
  8. LORATADINE [Concomitant]
  9. GEODON [Concomitant]
  10. PAXIL [Concomitant]
  11. BENZTROPINE MESYLATE [Concomitant]
  12. DEPAKOTE ER [Concomitant]
  13. PRILOSEC [Concomitant]
     Route: 048
  14. GEMFIBROZIL [Concomitant]
  15. DSS [Concomitant]

REACTIONS (14)
  - ABDOMINAL PAIN [None]
  - BLOOD GLUCOSE INCREASED [None]
  - CONFUSIONAL STATE [None]
  - DIZZINESS [None]
  - DRY MOUTH [None]
  - DYSKINESIA [None]
  - FLUID RETENTION [None]
  - HEART RATE ABNORMAL [None]
  - HYPERHIDROSIS [None]
  - INCREASED APPETITE [None]
  - SLEEP APNOEA SYNDROME [None]
  - TREMOR [None]
  - VISION BLURRED [None]
  - WEIGHT INCREASED [None]
